FAERS Safety Report 4944078-5 (Version None)
Quarter: 2006Q1

REPORT INFORMATION
  Report Type: 
  Country: None (occurrence: None)
  Receive Date: 20060315
  Receipt Date: 20060307
  Transmission Date: 20060701
  Serious: Yes (Life-Threatening, Other)
  Sender: FDA-Public Use
  Company Number: CA-BOEHRINGER INGELHEIM PHARMACEUTICALS, INC.-2006-CN-00142CN

PATIENT
  Sex: Female
  Weight: 73.03 kg

DRUGS (5)
  1. MICARDIS [Suspect]
     Indication: HYPERTENSION
     Route: 048
     Dates: start: 20050921
  2. PANTOPRAZOLE SODIUM [Concomitant]
     Indication: DYSPEPSIA
     Route: 048
     Dates: start: 19960101
  3. PANTOPRAZOLE SODIUM [Concomitant]
  4. ELIDEL [Concomitant]
     Indication: PHLEBITIS
     Route: 061
  5. MICARDIS HCT [Concomitant]
     Indication: HYPERTENSION
     Route: 048

REACTIONS (1)
  - BREAST CANCER [None]
